FAERS Safety Report 5171599-5 (Version None)
Quarter: 2006Q4

REPORT INFORMATION
  Report Type: 
  Country: None (occurrence: None)
  Receive Date: 20061213
  Receipt Date: 20061205
  Transmission Date: 20070319
  Serious: Yes (Life-Threatening)
  Sender: FDA-Public Use
  Company Number: FR-ROCHE-474072

PATIENT
  Age: 37 Year
  Sex: Male

DRUGS (6)
  1. VALIUM [Suspect]
     Indication: AGITATION
     Route: 048
     Dates: start: 20060808, end: 20060821
  2. LOXAPAC [Suspect]
     Indication: AGITATION
     Route: 065
     Dates: start: 20060808, end: 20060821
  3. NOZINAN [Suspect]
     Indication: AGITATION
     Route: 048
     Dates: start: 20060811, end: 20060821
  4. TRANXENE [Concomitant]
     Route: 030
     Dates: start: 20060811, end: 20060821
  5. THERALENE [Concomitant]
     Route: 048
     Dates: start: 20060805, end: 20060808
  6. TERCIAN [Concomitant]
     Dates: start: 20060804, end: 20060809

REACTIONS (10)
  - COMA [None]
  - LEUKOCYTOSIS [None]
  - MOANING [None]
  - NERVOUS SYSTEM DISORDER [None]
  - OVERDOSE [None]
  - PNEUMOCOCCAL INFECTION [None]
  - PNEUMONIA LEGIONELLA [None]
  - PYREXIA [None]
  - RENAL FAILURE [None]
  - RESPIRATORY DISTRESS [None]
